FAERS Safety Report 8122152-2 (Version None)
Quarter: 2012Q1

REPORT INFORMATION
  Report Type: 
  Country: None (occurrence: None)
  Receive Date: 20120208
  Receipt Date: 20120206
  Transmission Date: 20120608
  Serious: Yes (Other)
  Sender: FDA-Public Use
  Company Number: US-ROCHE-793658

PATIENT
  Sex: Female
  Weight: 77.18 kg

DRUGS (1)
  1. ACCUTANE [Suspect]
     Indication: ACNE
     Route: 065
     Dates: start: 19991029, end: 20000331

REACTIONS (8)
  - HEPATIC ENZYME INCREASED [None]
  - STRESS [None]
  - INFLAMMATORY BOWEL DISEASE [None]
  - BLOOD CHOLESTEROL INCREASED [None]
  - EMOTIONAL DISTRESS [None]
  - INSOMNIA [None]
  - IRRITABLE BOWEL SYNDROME [None]
  - SLEEP APNOEA SYNDROME [None]
